FAERS Safety Report 11273884 (Version 1)
Quarter: 2015Q3

REPORT INFORMATION
  Report Type: Spontaneous
  Country: US (occurrence: None)
  Receive Date: 20150714
  Receipt Date: 20150714
  Transmission Date: 20151125
  Serious: No
  Sender: FDA-Public Use
  Company Number: None

PATIENT
  Age: 64 Year
  Sex: Female

DRUGS (1)
  1. GENOTROPIN [Suspect]
     Active Substance: SOMATROPIN
     Indication: ENDOCRINE DISORDER
     Route: 058
     Dates: start: 20150627

REACTIONS (3)
  - Overdose [None]
  - Carpal tunnel syndrome [None]
  - Swelling [None]

NARRATIVE: CASE EVENT DATE: 20150701
